FAERS Safety Report 9434147 (Version 2)
Quarter: 2013Q3

REPORT INFORMATION
  Report Type: Report from Study
  Country: JP (occurrence: JP)
  Receive Date: 20130801
  Receipt Date: 20130912
  Transmission Date: 20140515
  Serious: Yes (Hospitalization)
  Sender: FDA-Public Use
  Company Number: JP-ROCHE-1253719

PATIENT
  Age: 71 Year
  Sex: Female
  Weight: 40 kg

DRUGS (34)
  1. METHOXY POLYETHYLENE GLYCOL-EPOETIN BETA [Suspect]
     Indication: NEPHROGENIC ANAEMIA
     Route: 042
     Dates: start: 20120710, end: 20120727
  2. METHOXY POLYETHYLENE GLYCOL-EPOETIN BETA [Suspect]
     Indication: NEPHROGENIC ANAEMIA
     Route: 042
     Dates: start: 20120814, end: 20120910
  3. METHOXY POLYETHYLENE GLYCOL-EPOETIN BETA [Suspect]
     Indication: NEPHROGENIC ANAEMIA
     Route: 042
     Dates: start: 20121107, end: 20130220
  4. METHOXY POLYETHYLENE GLYCOL-EPOETIN BETA [Suspect]
     Indication: NEPHROGENIC ANAEMIA
     Route: 042
     Dates: start: 20130508
  5. PREDNISOLONE [Suspect]
     Indication: MICROSCOPIC POLYANGIITIS
     Route: 048
     Dates: start: 20120703, end: 20120718
  6. PREDNISOLONE [Suspect]
     Indication: MICROSCOPIC POLYANGIITIS
     Route: 048
     Dates: start: 20120719, end: 20120731
  7. PREDNISOLONE [Suspect]
     Indication: MICROSCOPIC POLYANGIITIS
     Route: 048
     Dates: start: 20120801, end: 20120910
  8. PREDNISOLONE [Suspect]
     Indication: MICROSCOPIC POLYANGIITIS
     Route: 048
     Dates: start: 20120911, end: 20121107
  9. PREDNISOLONE [Suspect]
     Indication: MICROSCOPIC POLYANGIITIS
     Route: 048
     Dates: start: 20121108, end: 20130123
  10. PREDNISOLONE [Suspect]
     Indication: MICROSCOPIC POLYANGIITIS
     Route: 048
     Dates: start: 20130124, end: 20130220
  11. PREDNISOLONE [Suspect]
     Indication: MICROSCOPIC POLYANGIITIS
     Route: 048
     Dates: start: 20130221, end: 20130329
  12. PREDNISOLONE [Suspect]
     Indication: MICROSCOPIC POLYANGIITIS
     Route: 048
     Dates: start: 20130330, end: 20130508
  13. PREDNISOLONE [Suspect]
     Indication: MICROSCOPIC POLYANGIITIS
     Route: 048
     Dates: start: 20130509, end: 20130612
  14. PREDNISOLONE [Suspect]
     Indication: MICROSCOPIC POLYANGIITIS
     Route: 048
     Dates: start: 20130613
  15. VALACICLOVIR HYDROCHLORIDE [Suspect]
     Indication: PROPHYLAXIS
     Route: 048
     Dates: start: 20121204, end: 20121205
  16. VALACICLOVIR HYDROCHLORIDE [Suspect]
     Indication: PROPHYLAXIS
     Route: 048
     Dates: start: 20121206, end: 20121210
  17. FEBURIC [Concomitant]
     Route: 048
     Dates: start: 20121212
  18. TRIAZOLAM [Concomitant]
     Route: 048
     Dates: start: 20120703
  19. SAWATENE [Concomitant]
     Route: 048
     Dates: start: 20120709, end: 20130123
  20. AMLODIPINE [Concomitant]
     Route: 048
     Dates: start: 20120711, end: 20120814
  21. AMLODIPINE [Concomitant]
     Route: 048
     Dates: start: 20121210, end: 20121226
  22. PREMINENT [Concomitant]
     Route: 048
     Dates: end: 20120731
  23. DIOVAN [Concomitant]
     Route: 048
     Dates: start: 20120801, end: 20120814
  24. DIOVAN [Concomitant]
     Route: 048
     Dates: start: 20121210, end: 20121226
  25. EXFORGE [Concomitant]
     Route: 048
     Dates: start: 20120815, end: 20121209
  26. EXFORGE [Concomitant]
     Route: 048
     Dates: start: 20121227
  27. TAKEPRON [Concomitant]
     Indication: PROPHYLAXIS
     Route: 048
     Dates: end: 20121107
  28. NEXIUM [Concomitant]
     Indication: PROPHYLAXIS
     Route: 048
     Dates: start: 20121108
  29. BACTRAMIN [Concomitant]
     Indication: PROPHYLAXIS
     Route: 048
     Dates: start: 20120725
  30. ACTONEL [Concomitant]
     Route: 048
     Dates: start: 20120703, end: 20120726
  31. ACTONEL [Concomitant]
     Route: 048
     Dates: start: 20121011
  32. FORTEO [Concomitant]
     Route: 058
     Dates: start: 20120727, end: 20121010
  33. TOYOFAROL [Concomitant]
     Route: 048
     Dates: start: 20121011, end: 20130220
  34. HOKUNALIN [Concomitant]
     Route: 061
     Dates: start: 20120714

REACTIONS (2)
  - Herpes zoster [Recovering/Resolving]
  - Renal impairment [Recovered/Resolved]
